FAERS Safety Report 15117563 (Version 1)
Quarter: 2018Q3

REPORT INFORMATION
  Report Type: Spontaneous
  Country: US (occurrence: US)
  Receive Date: 20180706
  Receipt Date: 20180706
  Transmission Date: 20181010
  Serious: Yes (Other)
  Sender: FDA-Public Use
  Company Number: US-BEH-2018092451

PATIENT
  Sex: Female
  Weight: 67.8 kg

DRUGS (31)
  1. NORMAL SALINE [Concomitant]
     Active Substance: SODIUM CHLORIDE
  2. MULTIVITAMINS [Concomitant]
     Active Substance: VITAMINS
  3. CALCIUM 600 PLUS VITAMIN D3 [Concomitant]
  4. PRIVIGEN [Suspect]
     Active Substance: HUMAN IMMUNOGLOBULIN G
     Dosage: UNK
     Route: 042
  5. AMBIEN [Concomitant]
     Active Substance: ZOLPIDEM TARTRATE
  6. AMLODIPINE [Concomitant]
     Active Substance: AMLODIPINE BESYLATE
  7. ACETAMINOPHEN. [Concomitant]
     Active Substance: ACETAMINOPHEN
  8. MELATONIN [Concomitant]
     Active Substance: MELATONIN
  9. GRANISETRON [Concomitant]
     Active Substance: GRANISETRON
  10. PRIVIGEN [Suspect]
     Active Substance: HUMAN IMMUNOGLOBULIN G
     Indication: SELECTIVE IGG SUBCLASS DEFICIENCY
     Dosage: 35 G, QMT (EVERY 4 WEEKS)
     Route: 042
     Dates: start: 20160310
  11. PRIVIGEN [Suspect]
     Active Substance: HUMAN IMMUNOGLOBULIN G
     Dosage: UNK
     Route: 042
  12. BUTALBITAL W/CAFFEINE/PARACETAMOL [Concomitant]
     Active Substance: ACETAMINOPHEN\BUTALBITAL\CAFFEINE
  13. LIDOCAINE. [Concomitant]
     Active Substance: LIDOCAINE
  14. PRILOCAINE [Concomitant]
     Active Substance: PRILOCAINE
  15. LIPITOR [Concomitant]
     Active Substance: ATORVASTATIN CALCIUM
  16. MIRALAX [Concomitant]
     Active Substance: POLYETHYLENE GLYCOL 3350
  17. IMITREX [Concomitant]
     Active Substance: SUMATRIPTAN SUCCINATE
  18. EPINEPHRINE. [Concomitant]
     Active Substance: EPINEPHRINE
  19. REVLIMID [Concomitant]
     Active Substance: LENALIDOMIDE
  20. ASPIRIN. [Concomitant]
     Active Substance: ASPIRIN
  21. HEPARIN [Concomitant]
     Active Substance: HEPARIN SODIUM
  22. SODIUM CHLORIDE. [Concomitant]
     Active Substance: SODIUM CHLORIDE
  23. COLACE [Concomitant]
     Active Substance: DOCUSATE SODIUM
  24. LEVOTHYROXINE. [Concomitant]
     Active Substance: LEVOTHYROXINE
  25. MAGNESIUM [Concomitant]
     Active Substance: MAGNESIUM
  26. PREVACID [Concomitant]
     Active Substance: LANSOPRAZOLE
  27. PRIVIGEN [Suspect]
     Active Substance: HUMAN IMMUNOGLOBULIN G
     Dosage: UNK
     Route: 042
  28. ONDANSETRON [Concomitant]
     Active Substance: ONDANSETRON
  29. METOPROLOL. [Concomitant]
     Active Substance: METOPROLOL
  30. XOPENEX [Concomitant]
     Active Substance: LEVALBUTEROL HYDROCHLORIDE
  31. DIPHENHYDRAMINE. [Concomitant]
     Active Substance: DIPHENHYDRAMINE

REACTIONS (2)
  - Hypoaesthesia [Unknown]
  - Dysarthria [Unknown]
